FAERS Safety Report 6233535-X (Version None)
Quarter: 2009Q2

REPORT INFORMATION
  Report Type: 
  Country: None (occurrence: None)
  Receive Date: 20090617
  Receipt Date: 20090615
  Transmission Date: 20091009
  Serious: No
  Sender: FDA-Public Use
  Company Number: US-B.I. PHARMACEUTICALS,INC./RIDGEFIELD-2009-BP-00099BP

PATIENT
  Age: 59 Year
  Sex: Female

DRUGS (5)
  1. SPIRIVA [Suspect]
     Indication: LUNG DISORDER
     Dosage: 18MCG
     Route: 055
     Dates: start: 20040101
  2. DIOVAN HCT [Concomitant]
     Indication: HYPERTENSION
  3. ADVAIR HFA [Concomitant]
     Indication: LUNG DISORDER
  4. ASPIRIN [Concomitant]
  5. ADVIL [Concomitant]

REACTIONS (9)
  - BRONCHITIS [None]
  - DYSGEUSIA [None]
  - INFLUENZA [None]
  - MUCOUS MEMBRANE DISORDER [None]
  - NAUSEA [None]
  - PRODUCTIVE COUGH [None]
  - RETCHING [None]
  - RHINORRHOEA [None]
  - VOMITING [None]
